FAERS Safety Report 6207508-7 (Version None)
Quarter: 2009Q2

REPORT INFORMATION
  Report Type: 
  Country: None (occurrence: None)
  Receive Date: 20090528
  Receipt Date: 20090520
  Transmission Date: 20091009
  Serious: Yes (Other)
  Sender: FDA-Public Use
  Company Number: US-AVENTIS-200914371US

PATIENT
  Age: 67 Year
  Sex: Female

DRUGS (7)
  1. LANTUS [Suspect]
     Dosage: DOSE: 12-15 UNITS
     Route: 058
  2. OPTICLIK (INSULIN INJECTION PEN) [Suspect]
  3. GLIPIZIDE [Concomitant]
     Dosage: DOSE: UNK
  4. HYDRALAZINE HCL [Concomitant]
     Dosage: DOSE: UNK
  5. METOPROLOL SUCCINATE [Concomitant]
     Dosage: DOSE: UNK
  6. AMLODIPINE [Concomitant]
     Dosage: DOSE: UNK
  7. ANTIGLAUCOMA PREPARATIONS AND MIOTICS [Concomitant]
     Dosage: DOSE: UNK

REACTIONS (3)
  - BLOOD GLUCOSE DECREASED [None]
  - CATARACT [None]
  - VISUAL ACUITY REDUCED [None]
